FAERS Safety Report 4485260-3 (Version None)
Quarter: 2004Q4

REPORT INFORMATION
  Report Type: 
  Country: None (occurrence: None)
  Receive Date: 20041021
  Receipt Date: 20041021
  Transmission Date: 20050328
  Serious: Yes (Hospitalization)
  Sender: FDA-Public Use
  Company Number: None

PATIENT
  Age: 93 Year
  Sex: Female
  Weight: 68.9467 kg

DRUGS (8)
  1. SANCTURA [Suspect]
     Indication: URINARY INCONTINENCE
     Dosage: ORAL
     Route: 048
     Dates: start: 20041011, end: 20041018
  2. KCL TAB [Concomitant]
  3. LABETALOL [Concomitant]
  4. OCUVITE [Concomitant]
  5. PLENDIL [Concomitant]
  6. NITROQUIK [Concomitant]
  7. ISOSORBIDE [Concomitant]
  8. PROTONIX [Concomitant]

REACTIONS (3)
  - ASTHENIA [None]
  - DYSSTASIA [None]
  - MOVEMENT DISORDER [None]
